FAERS Safety Report 4964009-1 (Version None)
Quarter: 2006Q1

REPORT INFORMATION
  Report Type: 
  Country: None (occurrence: None)
  Receive Date: 20060330
  Receipt Date: 20060321
  Transmission Date: 20060701
  Serious: Yes (Hospitalization, Other)
  Sender: FDA-Public Use
  Company Number: 2006040341

PATIENT
  Age: 93 Year
  Sex: Female

DRUGS (11)
  1. NEURONTIN [Suspect]
     Indication: SPINAL COLUMN STENOSIS
     Dosage: 300 MG (300 MG, 1 IN 1 D),
  2. ZYPREXA [Suspect]
     Indication: MENTAL DISORDER
     Dosage: 10 MG (10 MG, 1 IN 1 D),
     Dates: start: 20030701, end: 20060201
  3. HALDOL SOLUTAB [Suspect]
     Indication: AGITATION
     Dates: start: 20020501, end: 20020501
  4. KEFLEX [Suspect]
     Indication: URINARY TRACT INFECTION
     Dates: start: 20030701
  5. VASOTEC [Concomitant]
  6. LASIX [Concomitant]
  7. ARICEPT [Concomitant]
  8. PREVACID [Concomitant]
  9. SENOKOT [Concomitant]
  10. MOTRIN [Concomitant]
  11. TYLENOL [Concomitant]

REACTIONS (25)
  - AGGRESSION [None]
  - AGITATION [None]
  - APHASIA [None]
  - CONDITION AGGRAVATED [None]
  - DIET REFUSAL [None]
  - DIFFICULTY IN WALKING [None]
  - DISCOMFORT [None]
  - DRUG DOSE OMISSION [None]
  - DYSPHAGIA [None]
  - FALL [None]
  - HAEMORRHOIDS [None]
  - HEART RATE DECREASED [None]
  - HYPERSOMNIA [None]
  - HYPOTENSION [None]
  - INFLUENZA [None]
  - MENTAL DISORDER [None]
  - NERVOUS SYSTEM DISORDER [None]
  - ORAL INTAKE REDUCED [None]
  - PAIN [None]
  - REFUSAL OF TREATMENT BY PATIENT [None]
  - SEDATION [None]
  - SOMNOLENCE [None]
  - THERAPY NON-RESPONDER [None]
  - URINARY TRACT INFECTION [None]
  - WEIGHT FLUCTUATION [None]
